FAERS Safety Report 13595014 (Version 2)
Quarter: 2017Q2

REPORT INFORMATION
  Report Type: Spontaneous
  Country: RU (occurrence: RU)
  Receive Date: 20170531
  Receipt Date: 20170629
  Transmission Date: 20170830
  Serious: Yes (Life-Threatening, Other)
  Sender: FDA-Public Use
  Company Number: RU-LUPIN PHARMACEUTICALS INC.-2017-02696

PATIENT
  Age: 65 Year
  Sex: Male
  Weight: 74 kg

DRUGS (4)
  1. ISONIAZIDUM [Suspect]
     Active Substance: ISONIAZID
     Indication: PULMONARY TUBERCULOSIS
     Dosage: 0.6 UNK, QD
     Route: 065
     Dates: start: 20170216, end: 20170321
  2. RIFAMPICINUM [Suspect]
     Active Substance: RIFAMPIN
     Indication: PULMONARY TUBERCULOSIS
     Dosage: 0.6 UNK, QD
     Route: 065
     Dates: start: 20170216, end: 20170321
  3. ETHAMBUTOL [Suspect]
     Active Substance: ETHAMBUTOL HYDROCHLORIDE
     Indication: PULMONARY TUBERCULOSIS
     Dosage: 2.0 UNK, QD
     Route: 065
     Dates: start: 20170216, end: 20170321
  4. PYRAZINAMIDE. [Suspect]
     Active Substance: PYRAZINAMIDE
     Indication: PULMONARY TUBERCULOSIS
     Dosage: 2.0 UNK, QD
     Route: 065
     Dates: start: 20170216, end: 20170321

REACTIONS (6)
  - Purpura [Not Recovered/Not Resolved]
  - Haematuria [Not Recovered/Not Resolved]
  - Rheumatoid factor increased [Unknown]
  - Polyarthritis [Not Recovered/Not Resolved]
  - Gout [Not Recovered/Not Resolved]
  - Rash papular [Not Recovered/Not Resolved]

NARRATIVE: CASE EVENT DATE: 20170316
